FAERS Safety Report 19013653 (Version 5)
Quarter: 2021Q3

REPORT INFORMATION
  Report Type: Report from Study
  Country: US (occurrence: US)
  Receive Date: 20210315
  Receipt Date: 20210927
  Transmission Date: 20211014
  Serious: Yes (Hospitalization, Other)
  Sender: FDA-Public Use
  Company Number: US-GILEAD-2021-0520868

PATIENT
  Age: 48 Year
  Sex: Female

DRUGS (53)
  1. NYSTATIN. [Concomitant]
     Active Substance: NYSTATIN
  2. SALBUTAMOL SULFATE [Concomitant]
     Active Substance: ALBUTEROL SULFATE
  3. SUMATRIPTAN. [Concomitant]
     Active Substance: SUMATRIPTAN
  4. CARMELLOSE [Concomitant]
     Active Substance: CARBOXYMETHYLCELLULOSE
  5. CHLORHEXIDINE [Concomitant]
     Active Substance: CHLORHEXIDINE
  6. ALBUMIN HUMAN [Concomitant]
     Active Substance: ALBUMIN HUMAN
  7. AMANTADINE. [Concomitant]
     Active Substance: AMANTADINE HYDROCHLORIDE
  8. DEXMEDETOMIDINE. [Concomitant]
     Active Substance: DEXMEDETOMIDINE
  9. MIDAZOLAM. [Concomitant]
     Active Substance: MIDAZOLAM
  10. RIVAROXABAN [Concomitant]
     Active Substance: RIVAROXABAN
  11. CEFUROXIME. [Concomitant]
     Active Substance: CEFUROXIME
  12. PHENAZOPYRIDINE. [Concomitant]
     Active Substance: PHENAZOPYRIDINE
  13. ACETAZOLAMIDE. [Concomitant]
     Active Substance: ACETAZOLAMIDE
  14. GABAPENTIN. [Concomitant]
     Active Substance: GABAPENTIN
  15. HYDROCORTISONE SODIUM SUCCINATE [Concomitant]
     Active Substance: HYDROCORTISONE SODIUM SUCCINATE
  16. MODAFINIL. [Concomitant]
     Active Substance: MODAFINIL
  17. SODIUM CHLORIDE. [Concomitant]
     Active Substance: SODIUM CHLORIDE
  18. VANCOMYCIN [Concomitant]
     Active Substance: VANCOMYCIN
  19. METHYLPHENIDATE. [Concomitant]
     Active Substance: METHYLPHENIDATE
  20. PARACETAMOL [Concomitant]
     Active Substance: ACETAMINOPHEN
  21. AMIKACIN. [Concomitant]
     Active Substance: AMIKACIN
  22. BLINDED INFLIXIMAB [Suspect]
     Active Substance: INFLIXIMAB
     Indication: COVID-19
     Dosage: UNK, ONCE
     Route: 042
     Dates: start: 20210209, end: 20210209
  23. PLACEBO [Suspect]
     Active Substance: UNSPECIFIED INGREDIENT
     Indication: COVID-19
     Dosage: UNK, ONCE
     Route: 042
     Dates: start: 20210209, end: 20210209
  24. CHLORDIAZEPOXIDE. [Concomitant]
     Active Substance: CHLORDIAZEPOXIDE
  25. FUROSEMIDE. [Concomitant]
     Active Substance: FUROSEMIDE
  26. IPRATROPIUM [Concomitant]
     Active Substance: IPRATROPIUM
  27. MEROPENEM. [Concomitant]
     Active Substance: MEROPENEM
  28. NICARDIPINE [Concomitant]
     Active Substance: NICARDIPINE
  29. PROPOFOL. [Concomitant]
     Active Substance: PROPOFOL
  30. VASOPRESSIN. [Concomitant]
     Active Substance: VASOPRESSIN
  31. POTASSIUM CHLORIDE. [Concomitant]
     Active Substance: POTASSIUM CHLORIDE
  32. CLONIDINE. [Concomitant]
     Active Substance: CLONIDINE
  33. HYDROMORPHONE [Concomitant]
     Active Substance: HYDROMORPHONE
  34. INSULIN [Concomitant]
     Active Substance: INSULIN NOS
  35. LABETALOL [Concomitant]
     Active Substance: LABETALOL\LABETALOL HYDROCHLORIDE
  36. VORICONAZOLE. [Concomitant]
     Active Substance: VORICONAZOLE
  37. CLONIDINE HYDROCHLORIDE. [Concomitant]
     Active Substance: CLONIDINE HYDROCHLORIDE
  38. COLECALCIFEROL [Concomitant]
     Active Substance: CHOLECALCIFEROL
  39. MAGNESIUM SULFATE. [Concomitant]
     Active Substance: MAGNESIUM SULFATE
  40. ESOMEPRAZOLE. [Concomitant]
     Active Substance: ESOMEPRAZOLE MAGNESIUM
  41. HEPARIN [Concomitant]
     Active Substance: HEPARIN SODIUM
  42. LIDOCAINE. [Concomitant]
     Active Substance: LIDOCAINE
  43. MICAFUNGIN. [Concomitant]
     Active Substance: MICAFUNGIN SODIUM
  44. NALOXONE [Concomitant]
     Active Substance: NALOXONE
  45. PIPERACILLIN AND TAZOBACTAM [Concomitant]
     Active Substance: PIPERACILLIN SODIUM\TAZOBACTAM SODIUM
  46. ROCURONIUM [Concomitant]
     Active Substance: ROCURONIUM BROMIDE
  47. COLLAGEN [Concomitant]
     Active Substance: COLLAGEN
  48. MACROGOL 3350 [Concomitant]
     Active Substance: POLYETHYLENE GLYCOL 3350
  49. REMDESIVIR. [Suspect]
     Active Substance: REMDESIVIR
     Indication: COVID-19
     Dosage: UNK, QD
     Route: 042
     Dates: start: 20210209
  50. AMLODIPINE [Concomitant]
     Active Substance: AMLODIPINE BESYLATE
  51. FENTANYL. [Concomitant]
     Active Substance: FENTANYL
  52. PHENYLEPHRINE [Concomitant]
     Active Substance: PHENYLEPHRINE HYDROCHLORIDE
  53. DIPHENHYDRAMINE LAURILSULFATE [Concomitant]

REACTIONS (3)
  - Systemic inflammatory response syndrome [Recovered/Resolved]
  - Sepsis [Recovered/Resolved]
  - Posterior reversible encephalopathy syndrome [Recovering/Resolving]

NARRATIVE: CASE EVENT DATE: 20210224
